FAERS Safety Report 3813179 (Version 1)
Quarter: 2020Q3

REPORT INFORMATION
  Report Type: Spontaneous
  Country: JP (occurrence: None)
  Receive Date: 20020628
  Receipt Date: 20020628
  Transmission Date: 20201104
  Serious: Yes (Hospitalization)
  Sender: FDA-Public Use
  Company Number: M0497-2002

PATIENT
  Age: 82 Year
  Sex: Male

DRUGS (22)
  1. MORPHINE HYDROCHLORIDE [Suspect]
     Active Substance: MORPHINE HYDROCHLORIDE
     Indication: ANAESTHESIA
     Dosage: 50 MG
     Route: 042
     Dates: start: 20020520, end: 20020520
  2. METHYLPREDNISOLONE. [Concomitant]
     Active Substance: METHYLPREDNISOLONE
  3. EPHEDRINE. [Concomitant]
     Active Substance: EPHEDRINE
  4. PROPOFOL. [Suspect]
     Active Substance: PROPOFOL
     Indication: ANAESTHESIA
     Dosage: 2200 MG
     Route: 042
     Dates: start: 20020520, end: 20020520
  5. SEVOFLURANE. [Concomitant]
     Active Substance: SEVOFLURANE
     Dosage: 20 %
     Route: 055
     Dates: start: 20020520, end: 20020520
  6. METHOTREXATE. [Concomitant]
     Active Substance: METHOTREXATE
  7. EPHEDRINE. [Suspect]
     Active Substance: EPHEDRINE
     Dosage: 5 MG
     Route: 042
     Dates: start: 20020520, end: 20020520
  8. FENTANYL CITRATE. [Suspect]
     Active Substance: FENTANYL CITRATE
     Indication: ANAESTHESIA
     Dosage: 2 MG
     Route: 042
     Dates: start: 20020520, end: 20020520
  9. MIDAZOLAM HYDROCHLORIDE. [Suspect]
     Active Substance: MIDAZOLAM HYDROCHLORIDE
     Indication: ANAESTHESIA
     Dosage: 4 MG
     Route: 042
     Dates: start: 20020520, end: 20020520
  10. VECURONIUM BROMIDE. [Suspect]
     Active Substance: VECURONIUM BROMIDE
     Indication: ANAESTHESIA
     Dosage: 19 MG
     Route: 042
     Dates: start: 20020520, end: 20020520
  11. ALPROSTADIL. [Suspect]
     Active Substance: ALPROSTADIL
     Indication: ANAESTHESIA
     Dosage: 0.01 MG/KG
     Route: 041
     Dates: start: 20020520, end: 20020520
  12. GLYCERYL TRINITRATE [Suspect]
     Active Substance: NITROGLYCERIN
     Indication: ANAESTHESIA
     Route: 041
     Dates: start: 20020520, end: 20020520
  13. NICORANDIL [Suspect]
     Active Substance: NICORANDIL
     Indication: ANAESTHESIA
     Dosage: 1 UG/KG
     Route: 041
     Dates: start: 20020520, end: 20020520
  14. DOPAMINE HYDROCHLORIDE. [Suspect]
     Active Substance: DOPAMINE HYDROCHLORIDE
     Indication: ANAESTHESIA
     Route: 041
     Dates: start: 20020520, end: 20020520
  15. DIAZEPAM. [Concomitant]
     Active Substance: DIAZEPAM
  16. HEPARIN [Suspect]
     Active Substance: HEPARIN SODIUM
     Dosage: 9 ML
     Route: 042
     Dates: start: 20020520, end: 20020520
  17. PROTAMINE [Suspect]
     Active Substance: PROTAMINE
     Dosage: 9 ML
     Route: 042
     Dates: start: 20020520, end: 20020520
  18. EPINEPHRINE. [Concomitant]
     Active Substance: EPINEPHRINE
  19. MILRINONE [Suspect]
     Active Substance: MILRINONE
     Indication: ANAESTHESIA
     Dosage: 5 UG/KG
     Route: 042
     Dates: start: 20020520, end: 20020520
  20. URINASTATIN [Suspect]
     Active Substance: URINASTATIN
     Dosage: 300 MG
     Route: 041
     Dates: start: 20020520, end: 20020520
  21. METHOXAMINE [Suspect]
     Active Substance: METHOXAMINE
     Dosage: 1 MG
     Route: 042
     Dates: start: 20020520, end: 20020520
  22. LIDOCAINE. [Concomitant]
     Active Substance: LIDOCAINE

REACTIONS (1)
  - Anaphylactic shock [None]

NARRATIVE: CASE EVENT DATE: 20020520
